FAERS Safety Report 23700405 (Version 4)
Quarter: 2024Q3

REPORT INFORMATION
  Report Type: Report from Study
  Country: US (occurrence: US)
  Receive Date: 20240403
  Receipt Date: 20240903
  Transmission Date: 20241017
  Serious: Yes (Other)
  Sender: ABBVIE
  Company Number: US-ABBVIE-5654427

PATIENT
  Sex: Male
  Weight: 101 kg

DRUGS (39)
  1. HUMIRA [Suspect]
     Active Substance: ADALIMUMAB
     Indication: Psoriatic arthropathy
     Dosage: CITRATE FREE?FORM STRENGTH: 40 MG
     Route: 058
     Dates: start: 201701
  2. HUMIRA [Suspect]
     Active Substance: ADALIMUMAB
     Dosage: CITRATE FREE?FORM STRENGTH: 40 MG
     Route: 058
     Dates: start: 20240423
  3. HUMIRA [Suspect]
     Active Substance: ADALIMUMAB
     Route: 058
  4. LIPITOR [Concomitant]
     Active Substance: ATORVASTATIN CALCIUM
     Indication: Blood cholesterol abnormal
     Dosage: 20MG 1/BEDTIME	ES
  5. STIOLTO RESPIMAT [Concomitant]
     Active Substance: OLODATEROL HYDROCHLORIDE\TIOTROPIUM BROMIDE MONOHYDRATE
     Indication: Cough
     Dosage: 2.5/2.5MCG INH 4GM INHALE 2 PUFFS MORN
  6. IRON [Concomitant]
     Active Substance: IRON
     Indication: Iron deficiency
     Dosage: 325/MG 1/MORN 5, M, W, F	WG
  7. CYMBALTA [Concomitant]
     Active Substance: DULOXETINE HYDROCHLORIDE
     Indication: Depression
     Dosage: 60MG	2/MORN	ES
  8. METFORMIN HYDROCHLORIDE [Concomitant]
     Active Substance: METFORMIN HYDROCHLORIDE
     Indication: Blood glucose abnormal
     Dosage: 500MG 1/MORN AND 1/NIGHT	ES; TABS
  9. HERBALS\TURMERIC [Concomitant]
     Active Substance: HERBALS\TURMERIC
     Indication: Arthritis
     Dosage: 500 MG 1/MORN + 1/NIGHT	WG
  10. FISH OIL\OMEGA-3 FATTY ACIDS [Concomitant]
     Active Substance: FISH OIL\OMEGA-3 FATTY ACIDS
     Indication: Cardiac disorder
     Dosage: 1/MORN; WG; 1200MG ; 360MG -
  11. AMOXICILLIN [Concomitant]
     Active Substance: AMOXICILLIN
     Indication: Dental care
     Dosage: 500 MG 4 CAPSULES 1 HOUR PRIOR TO DENTAL APPT.	WG
  12. UBIQUINOL [Concomitant]
     Active Substance: UBIQUINOL
     Indication: Supplementation therapy
     Dosage: 100 MG 1/NIGHT S, T, W, T, F	WG
  13. ALLOPURINOL [Concomitant]
     Active Substance: ALLOPURINOL
     Indication: Gout
     Dosage: 300MG 1/MORN + 1/NIGHT	ES
  14. REQUIP [Concomitant]
     Active Substance: ROPINIROLE HYDROCHLORIDE
     Indication: Restless legs syndrome
     Dosage: 5 MG 1/NIGHT	ES
  15. NEURONTIN [Concomitant]
     Active Substance: GABAPENTIN
     Indication: Neuropathy peripheral
     Dosage: 600 MG 2/M, 1/N, + 1/BEDTIME
  16. CLINDAMYCIN AND BENZOYL PEROXIDE [Concomitant]
     Active Substance: BENZOYL PEROXIDE\CLINDAMYCIN PHOSPHATE
     Indication: Acne
     Dosage: TIME INTERVAL: AS NECESSARY: 1% / 5%	ES	APPLY TO PIMPLES AS NEEDED; GEL
  17. MAGNESIUM [Concomitant]
     Active Substance: MAGNESIUM
     Indication: Mineral supplementation
     Dosage: 1/MORN + 1/NIGHT	WG;  500MG; FORM STRENGTH: 500 MG
  18. VYVANSE [Concomitant]
     Active Substance: LISDEXAMFETAMINE DIMESYLATE
     Indication: Depression
     Dosage: 70 MG 1/MORN ES
  19. FLUOCINONIDE [Concomitant]
     Active Substance: FLUOCINONIDE
     Indication: Rash
     Dosage: 0.05% APPLY TWICE DAILY TO HANDS (RASH)	ES	 AS NEEDED; CREAM
  20. ALBUTEROL SULFATE [Concomitant]
     Active Substance: ALBUTEROL SULFATE
     Indication: Cough
     Dosage: 200 PUFFS 6.7GM INHALE 1-2 PUFFS EVERY 6HR WG
  21. FIBERCON [Concomitant]
     Active Substance: CALCIUM POLYCARBOPHIL
     Indication: Mineral supplementation
     Dosage: 3-1/2 / MORN AND 3-1/2/NIGHT 4 MAX EACH TIME DAILY AM
  22. LASIX [Concomitant]
     Active Substance: FUROSEMIDE
     Indication: Diuretic therapy
     Dosage: 20 MG 2/MORN + 1/NIGHT
  23. FAMOTIDINE [Concomitant]
     Active Substance: FAMOTIDINE
     Indication: Gastrooesophageal reflux disease
     Dosage: 40MG 1/MORN AND 1/NIGHT CHERYL INCREASED TO 40MG WE
  24. VITAMIN C [Concomitant]
     Active Substance: ASCORBIC ACID
     Indication: Vitamin supplementation
  25. MYRBETRIQ [Concomitant]
     Active Substance: MIRABEGRON
     Indication: Micturition urgency
     Dosage: 50 MG	1/MORN	ES
  26. DAYVIGO [Concomitant]
     Active Substance: LEMBOREXANT
     Indication: Sleep disorder
     Dosage: TIME INTERVAL: AS NECESSARY: 10MG 1/BEDTIME	ES	 IF NEEDED
  27. SYNTHROID [Concomitant]
     Active Substance: LEVOTHYROXINE SODIUM
     Indication: Hyperthyroidism
     Dosage: 125 MCG	1/MORN
  28. COLCRYS [Concomitant]
     Active Substance: COLCHICINE
     Indication: Gout
     Dosage: 0.6MG 1/MORN	M AND F	ES
  29. UREA [Concomitant]
     Active Substance: UREA
     Indication: Psoriasis
     Dosage: APPLY TO KNEES + ELBOWS ONCE DAILY	ES; 40% CREAM
  30. PREDNISONE [Concomitant]
     Active Substance: PREDNISONE
     Indication: Gout
     Dosage: 10 MG 3 W/IN 1 HR OF ATTACK, FOLLOW INSTR. BOTTLE	WG
  31. METAMUCIL [Concomitant]
     Active Substance: PLANTAGO SEED
     Indication: Supplementation therapy
     Dosage: 3 IN 1 FIBER CAPSULES, 3/NIGHT	AM
  32. COREG [Concomitant]
     Active Substance: CARVEDILOL
     Indication: Cardiac disorder
     Dosage: 25MG 1/MORN AND 1/NIGHT
  33. ATIVAN [Concomitant]
     Active Substance: LORAZEPAM
     Indication: Anxiety
     Dosage: TIME INTERVAL: AS NECESSARY: 2MG	1/M, 1/N, 1/B + AS NEEDED	ES		4 PILLS DAILY MAX.
  34. CULTURELLE [Concomitant]
     Active Substance: LACTOBACILLUS RHAMNOSUS
     Indication: Dyspepsia
     Dosage: ADVANCED REGULARITY PROBIOTIC 1/MORN	AM
  35. OXYBUTYNIN [Concomitant]
     Active Substance: OXYBUTYNIN\OXYBUTYNIN CHLORIDE
     Indication: Product used for unknown indication
     Dosage: 5 MG	1/MORN	ES
  36. TAMSULOSIN [Concomitant]
     Active Substance: TAMSULOSIN
     Indication: Pollakiuria
     Dosage: 1/MORN + 1/NIGHT	ES; 0.4MG
  37. Methyl B-12 + Methyl Folate [Concomitant]
     Indication: Cerebral disorder
     Dosage: 1/MORN	AM; 500MCG AND 200MCG
  38. ASPIRIN [Concomitant]
     Active Substance: ASPIRIN
     Indication: Thrombosis
     Dosage: 81MG;1/NIGHT; BLOOD THINNER
  39. OZEMPIC [Concomitant]
     Active Substance: SEMAGLUTIDE
     Indication: Diabetes mellitus
     Dosage: PEN INJ. 1.0 MG EVERY FRIDAY	WG + ES

REACTIONS (14)
  - Knee arthroplasty [Not Recovered/Not Resolved]
  - Myalgia [Not Recovered/Not Resolved]
  - Fall [Recovering/Resolving]
  - Sciatica [Recovering/Resolving]
  - Procedural pain [Not Recovered/Not Resolved]
  - Wound dehiscence [Recovering/Resolving]
  - Nausea [Recovered/Resolved]
  - Insomnia [Not Recovered/Not Resolved]
  - Retching [Recovered/Resolved]
  - Arthralgia [Recovering/Resolving]
  - Wound secretion [Recovering/Resolving]
  - Wound haemorrhage [Recovering/Resolving]
  - Implantable cardiac monitor replacement [Recovered/Resolved]
  - Muscular weakness [Recovering/Resolving]

NARRATIVE: CASE EVENT DATE: 20240101
